FAERS Safety Report 9323623 (Version 2)
Quarter: 2013Q3

REPORT INFORMATION
  Report Type: Spontaneous
  Country: FR (occurrence: FR)
  Receive Date: 20130603
  Receipt Date: 20130828
  Transmission Date: 20140515
  Serious: Yes (Hospitalization)
  Sender: FDA-Public Use
  Company Number: FR-JNJFOC-20130519600

PATIENT
  Age: 83 Year
  Sex: Male

DRUGS (9)
  1. XARELTO [Suspect]
     Indication: CEREBROVASCULAR ACCIDENT PROPHYLAXIS
     Route: 048
  2. XARELTO [Suspect]
     Indication: CEREBROVASCULAR ACCIDENT PROPHYLAXIS
     Route: 048
     Dates: start: 20130507, end: 20130513
  3. LASILIX [Concomitant]
     Dosage: 40
     Route: 065
  4. DIFFU K [Concomitant]
     Route: 065
  5. ATORVASTATIN [Concomitant]
     Route: 065
  6. SEROPLEX [Concomitant]
     Route: 065
  7. ALPRAZOLAM [Concomitant]
     Route: 065
  8. RAMIPRIL [Concomitant]
     Dosage: 7.5
     Route: 065
  9. BISOPROLOL [Concomitant]
     Dosage: 1.25
     Route: 065

REACTIONS (2)
  - Haematuria [Recovered/Resolved]
  - Renal impairment [Unknown]
